FAERS Safety Report 6083099-9 (Version None)
Quarter: 2009Q1

REPORT INFORMATION
  Report Type: 
  Country: None (occurrence: None)
  Receive Date: 20090213
  Receipt Date: 20090213
  Transmission Date: 20090719
  Serious: Yes (Other)
  Sender: FDA-Public Use
  Company Number: None

PATIENT
  Age: 80 Year
  Sex: Male
  Weight: 68.0396 kg

DRUGS (1)
  1. MAJOR DEEP SEA PREMIUM SALINE NASAL MOISTURIZING SPRAY [Suspect]
     Dosage: SQUEEZE TWICE IN EACH NOSTRIL AS NEEDED 11 PM 1 SPRAY IN EACH NOSTRIL
     Dates: start: 20081221

REACTIONS (2)
  - BURNING SENSATION [None]
  - PAIN [None]
